FAERS Safety Report 4280274-0 (Version None)
Quarter: 2004Q1

REPORT INFORMATION
  Report Type: 
  Country: None (occurrence: None)
  Receive Date: 20040124
  Receipt Date: 20040113
  Transmission Date: 20041129
  Serious: Yes (Hospitalization)
  Sender: FDA-Public Use
  Company Number: GB-JNJFOC-20040102300

PATIENT
  Age: 62 Year
  Sex: Female

DRUGS (10)
  1. REMICADE [Suspect]
     Indication: RHEUMATOID ARTHRITIS
     Dosage: 276 MG , INTRAVENOUS
     Route: 042
     Dates: start: 20020701
  2. METHOTREXATE [Concomitant]
  3. FOLIC ACID [Concomitant]
  4. PREDNISOLONE [Concomitant]
  5. DICLOFENAC SODIUM [Concomitant]
  6. THYROXINE (LEVOTHYROXINE SODIUM) [Concomitant]
  7. BISOPROLOL FUMARATE [Concomitant]
  8. LORATADINE [Concomitant]
  9. SPIRONOLACTONE [Concomitant]
  10. HRT (ANDROGENS AND FEMALE SEX HORMONES IN COMB) [Concomitant]

REACTIONS (2)
  - SKIN ULCER [None]
  - STAPHYLOCOCCAL INFECTION [None]
